FAERS Safety Report 5918682-1 (Version None)
Quarter: 2008Q4

REPORT INFORMATION
  Report Type: 
  Country: None (occurrence: None)
  Receive Date: 20081015
  Receipt Date: 20080602
  Transmission Date: 20090506
  Serious: No
  Sender: FDA-Public Use
  Company Number: US-ASTRAZENECA-2008UW11100

PATIENT

DRUGS (1)
  1. SYMBICORT [Suspect]
     Dosage: 160 UG QD
     Route: 055

REACTIONS (1)
  - RASH GENERALISED [None]
